FAERS Safety Report 8786271 (Version 1)
Quarter: 2012Q4

REPORT INFORMATION
  Report Type: 
  Country: US (occurrence: US)
  Receive Date: 20120914
  Receipt Date: 20120914
  Transmission Date: 20130627
  Serious: No
  Sender: FDA-Public Use
  Company Number: US-VERTEX PHARMACEUTICAL INC.-AE-2012-010383

PATIENT

DRUGS (3)
  1. INCIVEK [Suspect]
     Indication: HEPATITIS C
     Route: 048
     Dates: start: 20120706, end: 20120708
  2. REBETOL [Concomitant]
     Indication: HEPATITIS C
     Dates: start: 20120706, end: 20120708
  3. PEGASYS [Concomitant]
     Indication: HEPATITIS C
     Route: 058
     Dates: start: 20120706, end: 20120708

REACTIONS (3)
  - Inappropriate schedule of drug administration [Unknown]
  - Burning sensation [Not Recovered/Not Resolved]
  - Urticaria [Recovered/Resolved]
